FAERS Safety Report 17611031 (Version 1)
Quarter: 2020Q2

REPORT INFORMATION
  Report Type: Spontaneous
  Country: US (occurrence: US)
  Receive Date: 20200401
  Receipt Date: 20200401
  Transmission Date: 20200713
  Serious: No
  Sender: FDA-Public Use
  Company Number: US-VERTEX PHARMACEUTICALS-2017-001701

PATIENT
  Age: 43 Year
  Sex: Female
  Weight: 53.06 kg

DRUGS (7)
  1. KALYDECO [Suspect]
     Active Substance: IVACAFTOR
     Indication: CYSTIC FIBROSIS
     Dosage: 150 MG, BID
     Route: 048
     Dates: start: 20151120
  2. ALBUTEROL SULFATE. [Concomitant]
     Active Substance: ALBUTEROL SULFATE
     Dosage: UNK
  3. PANTOPRAZOLE SODIUM. [Concomitant]
     Active Substance: PANTOPRAZOLE SODIUM
     Dosage: UNK, QD
     Route: 048
  4. ALDACTONE [Concomitant]
     Active Substance: SPIRONOLACTONE
     Dosage: UNK, BID
     Route: 048
  5. KALYDECO [Interacting]
     Active Substance: IVACAFTOR
     Dosage: UNK
     Route: 048
  6. TRETINOIN. [Concomitant]
     Active Substance: TRETINOIN
     Dosage: UNK
  7. KALYDECO [Interacting]
     Active Substance: IVACAFTOR
     Dosage: REDUCED DOSE
     Route: 048

REACTIONS (9)
  - Alcohol interaction [Unknown]
  - Alcoholic hangover [Unknown]
  - Vomiting [Not Recovered/Not Resolved]
  - Feeling abnormal [Unknown]
  - Headache [Recovering/Resolving]
  - Abdominal discomfort [Recovering/Resolving]
  - Gastrointestinal disorder [Recovered/Resolved]
  - Alcohol poisoning [Unknown]
  - Diarrhoea [Recovering/Resolving]

NARRATIVE: CASE EVENT DATE: 20170426
